FAERS Safety Report 6638994-6 (Version None)
Quarter: 2010Q1

REPORT INFORMATION
  Report Type: 
  Country: None (occurrence: None)
  Receive Date: 20100317
  Receipt Date: 20100218
  Transmission Date: 20100710
  Serious: Yes (Other)
  Sender: FDA-Public Use
  Company Number: PHHY2010TR09575

PATIENT
  Age: 58 Year
  Sex: Female

DRUGS (1)
  1. PIMECROLIMUS [Suspect]
     Dosage: UNK
     Route: 061

REACTIONS (6)
  - BLISTER [None]
  - ERYTHEMA [None]
  - HERPES ZOSTER [None]
  - PAIN [None]
  - SWELLING [None]
  - ULCER [None]
